FAERS Safety Report 22137363 (Version 1)
Quarter: 2023Q1

REPORT INFORMATION
  Report Type: Report from Study
  Country: JP (occurrence: JP)
  Receive Date: 20230325
  Receipt Date: 20230325
  Transmission Date: 20230418
  Serious: Yes (Hospitalization, Other)
  Sender: FDA-Public Use
  Company Number: JP-JNJFOC-20230349095

PATIENT
  Age: 79 Year
  Sex: Female

DRUGS (5)
  1. IMBRUVICA [Suspect]
     Active Substance: IBRUTINIB
     Indication: Chronic lymphocytic leukaemia recurrent
     Route: 048
     Dates: start: 20191003, end: 20191016
  2. IMBRUVICA [Suspect]
     Active Substance: IBRUTINIB
     Indication: Chronic lymphocytic leukaemia recurrent
     Route: 048
     Dates: start: 20190214, end: 20190717
  3. IMBRUVICA [Suspect]
     Active Substance: IBRUTINIB
     Indication: Chronic lymphocytic leukaemia recurrent
     Route: 048
     Dates: start: 20190718, end: 20190918
  4. IMBRUVICA [Suspect]
     Active Substance: IBRUTINIB
     Indication: Chronic lymphocytic leukaemia recurrent
     Route: 048
     Dates: start: 20190922, end: 20190925
  5. ACYCLOVIR [Concomitant]
     Active Substance: ACYCLOVIR
     Indication: Infection prophylaxis
     Dosage: DOSE UNKNOWN
     Route: 048
     Dates: end: 20201014

REACTIONS (12)
  - Sinusitis [Recovered/Resolved]
  - Contusion [Recovering/Resolving]
  - Upper respiratory tract inflammation [Recovered/Resolved]
  - Rash [Recovering/Resolving]
  - Gastroenteritis [Recovered/Resolved]
  - Cytopenia [Recovered/Resolved]
  - Papule [Recovering/Resolving]
  - Open angle glaucoma [Recovered/Resolved]
  - Sinusitis [Recovering/Resolving]
  - Eye movement disorder [Recovering/Resolving]
  - Pneumonia aspiration [Recovered/Resolved]
  - Neutrophil count decreased [Recovered/Resolved]

NARRATIVE: CASE EVENT DATE: 20190228
